FAERS Safety Report 8182984-1 (Version None)
Quarter: 2012Q1

REPORT INFORMATION
  Report Type: 
  Country: None (occurrence: None)
  Receive Date: 20120305
  Receipt Date: 20111205
  Transmission Date: 20120608
  Serious: No
  Sender: FDA-Public Use
  Company Number: US-BRISTOL-MYERS SQUIBB COMPANY-16273229

PATIENT
  Age: 4 Decade
  Sex: Female

DRUGS (2)
  1. KOMBIGLYZE XR [Suspect]
     Indication: DIABETES MELLITUS
     Route: 065
  2. METFORMIN HCL [Concomitant]

REACTIONS (1)
  - FACE OEDEMA [None]
